FAERS Safety Report 23454911 (Version 1)
Quarter: 2024Q1

REPORT INFORMATION
  Report Type: Spontaneous
  Country: CN (occurrence: None)
  Receive Date: 20240130
  Receipt Date: 20240130
  Transmission Date: 20240410
  Serious: Yes (Hospitalization)
  Sender: FDA-Public Use
  Company Number: CN-Solstice Neurosciences, LLC-SOL202401-000286

PATIENT
  Age: 25 Year
  Sex: Female

DRUGS (1)
  1. RIMABOTULINUMTOXINB [Suspect]
     Active Substance: RIMABOTULINUMTOXINB
     Indication: Muscle hypertrophy
     Dosage: NOT PROVIDED

REACTIONS (2)
  - Mycobacterium abscessus infection [Recovered/Resolved]
  - Product use in unapproved indication [Unknown]
